FAERS Safety Report 4457003-0 (Version None)
Quarter: 2004Q3

REPORT INFORMATION
  Report Type: 
  Country: None (occurrence: None)
  Receive Date: 20040923
  Receipt Date: 20040507
  Transmission Date: 20050211
  Serious: Yes (Death, Hospitalization)
  Sender: FDA-Public Use
  Company Number: JP-GLAXOSMITHKLINE-B0332082A

PATIENT
  Age: 59 Year
  Sex: Female

DRUGS (21)
  1. ZEFIX [Suspect]
     Indication: HEPATITIS B
     Route: 048
     Dates: start: 20010727, end: 20020825
  2. WELLFERON [Concomitant]
     Indication: HEPATIC CIRRHOSIS
     Dosage: 3IU6 PER DAY
     Dates: start: 20020805, end: 20030127
  3. PURSENNID [Concomitant]
     Route: 048
     Dates: start: 20010704
  4. FAMOTIDINE [Concomitant]
     Dosage: 40MG PER DAY
     Route: 048
     Dates: start: 20010829
  5. DICLOFENAC SODIUM [Concomitant]
     Dosage: 25MG PER DAY
     Route: 054
     Dates: start: 20020805, end: 20030129
  6. MECOBALAMIN [Concomitant]
     Dosage: 1500MCG PER DAY
     Route: 048
     Dates: start: 20020704, end: 20020926
  7. LACTULOSE [Concomitant]
     Dosage: 30ML PER DAY
     Route: 048
     Dates: start: 20010716
  8. INDOMETHACIN [Concomitant]
     Route: 061
     Dates: start: 20020917
  9. DIAZEPAM [Concomitant]
     Route: 048
     Dates: start: 20020803
  10. AMMONIUM GLYCYRRHIZATE [Concomitant]
     Indication: HEPATIC CIRRHOSIS
     Dosage: 60ML PER DAY
     Route: 042
     Dates: start: 20020808, end: 20030130
  11. AZULENE [Concomitant]
     Dosage: 2.01G PER DAY
     Route: 048
     Dates: start: 20021125
  12. TEPRENONE [Concomitant]
     Dosage: 150MG PER DAY
     Route: 048
     Dates: start: 20021125
  13. WHITE SOFT PARAFFIN [Concomitant]
     Route: 061
     Dates: start: 20030102
  14. POVIDONE IODINE [Concomitant]
     Route: 002
     Dates: start: 20021210
  15. URSODEOXYCHOLIC ACID [Concomitant]
     Dosage: 600MG PER DAY
     Route: 048
     Dates: start: 20030108
  16. DIPHENHYDRAMINE HCL [Concomitant]
     Route: 061
     Dates: start: 20030114
  17. SODIUM BICARBONATE [Concomitant]
     Route: 061
     Dates: start: 20030114
  18. FRUSEMIDE [Concomitant]
     Route: 048
  19. MAGNESIUM OXIDE [Concomitant]
     Dosage: .5G PER DAY
     Route: 048
     Dates: start: 20021010
  20. ALBUMIN (HUMAN) [Concomitant]
     Route: 042
  21. MENATETRENONE [Concomitant]
     Dosage: 10MG PER DAY
     Route: 042
     Dates: start: 20021210, end: 20030129

REACTIONS (6)
  - ALANINE AMINOTRANSFERASE INCREASED [None]
  - ASPARTATE AMINOTRANSFERASE INCREASED [None]
  - BLOOD BILIRUBIN INCREASED [None]
  - HYPOAESTHESIA [None]
  - JAUNDICE [None]
  - LIVER DISORDER [None]
